FAERS Safety Report 23222998 (Version 1)
Quarter: 2023Q4

REPORT INFORMATION
  Report Type: Report from Study
  Country: US (occurrence: US)
  Receive Date: 20231123
  Receipt Date: 20231123
  Transmission Date: 20240109
  Serious: Yes (Other)
  Sender: FDA-Public Use
  Company Number: US-TAKEDA-2023TUS067978

PATIENT
  Sex: Male

DRUGS (3)
  1. BRIGATINIB [Suspect]
     Active Substance: BRIGATINIB
     Indication: Lung neoplasm malignant
     Dosage: 90 MILLIGRAM, QD
     Route: 048
     Dates: start: 20230614
  2. BRIGATINIB [Suspect]
     Active Substance: BRIGATINIB
     Dosage: 180 MILLIGRAM
     Route: 048
  3. BRIGATINIB [Suspect]
     Active Substance: BRIGATINIB
     Dosage: 90 MILLIGRAM, QD
     Route: 048

REACTIONS (16)
  - Lung neoplasm malignant [Unknown]
  - Liver function test increased [Unknown]
  - Muscular weakness [Unknown]
  - Muscle fatigue [Recovering/Resolving]
  - Ageusia [Unknown]
  - Cough [Unknown]
  - Muscle tightness [Recovering/Resolving]
  - Taste disorder [Unknown]
  - Decreased appetite [Unknown]
  - Muscle spasms [Unknown]
  - Amylase increased [Unknown]
  - Blood creatinine increased [Unknown]
  - Dysgeusia [Recovering/Resolving]
  - Blood creatine phosphokinase increased [Recovered/Resolved]
  - Anaemia [Recovered/Resolved]
  - Arthralgia [Recovered/Resolved]
